FAERS Safety Report 4469660-3 (Version None)
Quarter: 2004Q4

REPORT INFORMATION
  Report Type: 
  Country: None (occurrence: None)
  Receive Date: 20041008
  Receipt Date: 20030605
  Transmission Date: 20050328
  Serious: Yes (Hospitalization, Disabling, Other)
  Sender: FDA-Public Use
  Company Number: US-MERCK-0306USA00831

PATIENT
  Age: 54 Year
  Sex: Female

DRUGS (4)
  1. OS-CAL [Concomitant]
     Route: 048
  2. HYDROCHLOROTHIAZIDE AND TRIAMTERENE [Concomitant]
     Route: 048
  3. CENTRUM [Concomitant]
     Route: 048
  4. VIOXX [Suspect]
     Route: 048

REACTIONS (36)
  - ACUTE SINUSITIS [None]
  - ADVERSE EVENT [None]
  - ANXIETY [None]
  - ASTHENIA [None]
  - ASTHMA [None]
  - ATELECTASIS [None]
  - BREAST CANCER STAGE I [None]
  - BRONCHITIS ACUTE [None]
  - CHEST PAIN [None]
  - CHRONIC SINUSITIS [None]
  - COLONIC POLYP [None]
  - DEHYDRATION [None]
  - DEPRESSION [None]
  - DIVERTICULUM [None]
  - DYSPHAGIA [None]
  - ESSENTIAL HYPERTENSION [None]
  - GASTRITIS [None]
  - HAEMORRHOIDS [None]
  - HEPATIC STEATOSIS [None]
  - HYPERGLYCAEMIA [None]
  - HYPERTHYROIDISM [None]
  - HYPOKALAEMIA [None]
  - HYPOTHYROIDISM [None]
  - LUNG NEOPLASM [None]
  - MENOPAUSE [None]
  - NASAL SEPTUM DEVIATION [None]
  - NEUROPATHY [None]
  - OEDEMA PERIPHERAL [None]
  - ORTHOSTATIC HYPOTENSION [None]
  - OSTEOARTHRITIS [None]
  - POLYDIPSIA [None]
  - RHINITIS ALLERGIC [None]
  - SCIATICA [None]
  - VERTIGO POSITIONAL [None]
  - VESTIBULAR NEURONITIS [None]
  - VIRAL UPPER RESPIRATORY TRACT INFECTION [None]
